FAERS Safety Report 5065157-0 (Version None)
Quarter: 2006Q3

REPORT INFORMATION
  Report Type: 
  Country: None (occurrence: None)
  Receive Date: 20060725
  Receipt Date: 20060628
  Transmission Date: 20061208
  Serious: Yes (Life-Threatening)
  Sender: FDA-Public Use
  Company Number: 2006ADE/DICLO-013

PATIENT
  Age: 69 Year
  Sex: Female

DRUGS (8)
  1. DICLOFENAC [Suspect]
     Indication: ANALGESIC EFFECT
     Dosage: 150 MG, DAILY, ORAL
     Route: 048
     Dates: start: 20060301, end: 20060529
  2. AMITRIPTYLINE HCL [Concomitant]
  3. ATENOLOL [Concomitant]
  4. BENDROFLUMETHIAZIDE [Concomitant]
  5. DOXAZOSIN [Concomitant]
  6. GLUCOSAMINE [Concomitant]
  7. LERCANIDIPIN [Concomitant]
  8. MORPHINE [Concomitant]

REACTIONS (2)
  - GASTROINTESTINAL HAEMORRHAGE [None]
  - RENAL FAILURE [None]
